FAERS Safety Report 6062445-6 (Version None)
Quarter: 2009Q1

REPORT INFORMATION
  Report Type: 
  Country: None (occurrence: None)
  Receive Date: 20090203
  Receipt Date: 20090128
  Transmission Date: 20090719
  Serious: Yes (Life-Threatening, Hospitalization, Other)
  Sender: FDA-Public Use
  Company Number: US-JNJFOC-20081001737

PATIENT
  Sex: Male
  Weight: 18.6 kg

DRUGS (3)
  1. INVEGA [Suspect]
     Indication: ABNORMAL BEHAVIOUR
     Route: 048
  2. SINEMET [Concomitant]
     Indication: ABNORMAL BEHAVIOUR
     Route: 048
  3. CLONIDINE HCL [Concomitant]
     Indication: DRUG USE FOR UNKNOWN INDICATION
     Dosage: 0.1 MG IN PM AND 0.5 MG IN AM = 0.6 MG
     Route: 048

REACTIONS (4)
  - DYSTONIA [None]
  - NEUROLEPTIC MALIGNANT SYNDROME [None]
  - THROAT TIGHTNESS [None]
  - TREMOR [None]
